FAERS Safety Report 20587946 (Version 1)
Quarter: 2022Q1

REPORT INFORMATION
  Report Type: Spontaneous
  Country: US (occurrence: US)
  Receive Date: 20220314
  Receipt Date: 20220314
  Transmission Date: 20220423
  Serious: No
  Sender: FDA-Public Use
  Company Number: US-Global Blood Therapeutics Inc-US-GBT-21-03553

PATIENT
  Sex: Female

DRUGS (2)
  1. OXBRYTA [Suspect]
     Active Substance: VOXELOTOR
     Indication: Sickle cell disease
     Route: 048
     Dates: start: 20200801
  2. OXBRYTA [Suspect]
     Active Substance: VOXELOTOR
     Route: 048
     Dates: start: 202108

REACTIONS (3)
  - Weight decreased [Unknown]
  - Therapy cessation [Unknown]
  - Product use complaint [Unknown]
